FAERS Safety Report 18411221 (Version 1)
Quarter: 2020Q4

REPORT INFORMATION
  Report Type: Spontaneous
  Country: US (occurrence: US)
  Receive Date: 20201021
  Receipt Date: 20201021
  Transmission Date: 20210114
  Serious: Yes (Hospitalization, Other)
  Sender: FDA-Public Use
  Company Number: US-PURDUE-USA-2020-0164475

PATIENT
  Age: 52 Year
  Sex: Female
  Weight: 66.67 kg

DRUGS (9)
  1. HYDROCODONE BITARTRATE AND ACETAMINOPHEN [Suspect]
     Active Substance: ACETAMINOPHEN\HYDROCODONE BITARTRATE
     Indication: TEETHING
  2. ALPRAZOLAM. [Concomitant]
     Active Substance: ALPRAZOLAM
     Indication: PRODUCT USED FOR UNKNOWN INDICATION
     Dosage: UNK, QID
     Route: 065
  3. VIVACTIL [Concomitant]
     Active Substance: PROTRIPTYLINE HYDROCHLORIDE
     Indication: PRODUCT USED FOR UNKNOWN INDICATION
     Dosage: 3 TABLET, DAILY
     Route: 065
  4. OXYCONTIN [Suspect]
     Active Substance: OXYCODONE HYDROCHLORIDE
     Indication: NEURALGIA
     Dosage: 40 MG, Q4H
     Route: 048
     Dates: start: 1991
  5. OXYCODONE/ ACETAMINOPHEN TABLETS [Suspect]
     Active Substance: ACETAMINOPHEN\OXYCODONE HYDROCHLORIDE
     Indication: PRODUCT USED FOR UNKNOWN INDICATION
     Dosage: UNK
     Route: 048
  6. OXYCODONE HCL CR TABLETS (SIMILAR TO NDA 22-272) [Suspect]
     Active Substance: OXYCODONE HYDROCHLORIDE
     Indication: PRODUCT USED FOR UNKNOWN INDICATION
     Dosage: UNK
     Route: 048
  7. LORCET [Suspect]
     Active Substance: ACETAMINOPHEN\HYDROCODONE BITARTRATE
     Indication: NEURALGIA
     Dosage: UNK
     Route: 048
  8. HYDROCODONE BITARTRATE AND ACETAMINOPHEN [Suspect]
     Active Substance: ACETAMINOPHEN\HYDROCODONE BITARTRATE
     Indication: NEURALGIA
     Dosage: UNK
     Route: 048
  9. DEXEDRINE [Concomitant]
     Active Substance: DEXTROAMPHETAMINE SULFATE
     Indication: PRODUCT USED FOR UNKNOWN INDICATION
     Dosage: 15 MG MORNING AND 10 MG NOON, DAILY

REACTIONS (28)
  - Drug withdrawal syndrome [Unknown]
  - Mood swings [Unknown]
  - Neck pain [Unknown]
  - Migraine [Unknown]
  - Asthenia [Unknown]
  - Drug dependence [Unknown]
  - Bipolar disorder [Unknown]
  - Pain [Unknown]
  - Drug abuse [Unknown]
  - Hallucination [Unknown]
  - Mania [Unknown]
  - Stress [Unknown]
  - Vomiting [Unknown]
  - Psychotic disorder [Recovered/Resolved]
  - Constipation [Unknown]
  - Nausea [Unknown]
  - Anxiety [Unknown]
  - Major depression [Unknown]
  - Cognitive disorder [Recovered/Resolved]
  - Mental disorder [Unknown]
  - Suicidal ideation [Unknown]
  - Emotional distress [Unknown]
  - Chest pain [Unknown]
  - Somnolence [Unknown]
  - Confusional state [Unknown]
  - Abnormal behaviour [Unknown]
  - Affect lability [Unknown]
  - Dysphoria [Unknown]

NARRATIVE: CASE EVENT DATE: 200409
